FAERS Safety Report 18717856 (Version 1)
Quarter: 2021Q1

REPORT INFORMATION
  Report Type: Spontaneous
  Country: CN (occurrence: CN)
  Receive Date: 20210108
  Receipt Date: 20210108
  Transmission Date: 20210419
  Serious: Yes (Other)
  Sender: FDA-Public Use
  Company Number: CN-ROCHE-2742608

PATIENT
  Sex: Female

DRUGS (9)
  1. CYCLOPHOSPHAMIDE. [Concomitant]
     Active Substance: CYCLOPHOSPHAMIDE
     Indication: BREAST CANCER
     Dosage: ONCE PER 3 WEEKS
     Dates: start: 20190802
  2. FLUOROURACIL. [Concomitant]
     Active Substance: FLUOROURACIL
     Dosage: (FLUOROURACIL):0.5*5/ONCE PER FOUR WEEKS
  3. ONDANSETRON [Concomitant]
     Active Substance: ONDANSETRON
     Route: 048
  4. DOCETAXEL. [Concomitant]
     Active Substance: DOCETAXEL
     Indication: BREAST CANCER
     Dosage: DAY2
     Dates: start: 20190802
  5. HERCEPTIN [Suspect]
     Active Substance: TRASTUZUMAB
     Indication: BREAST CANCER
     Dosage: 360MG DAY1 /270MG DAY1 (THE SECOND START)
     Route: 065
     Dates: start: 20190802
  6. XELODA [Suspect]
     Active Substance: CAPECITABINE
     Indication: BREAST CANCER
     Dosage: 14 DAYS,ONCE PER 3 WEEKS
     Route: 048
     Dates: start: 20191212
  7. CISPLATIN. [Concomitant]
     Active Substance: CISPLATIN
     Dosage: (CISPLATIN) 30MG* 5+CF
  8. EPIRUBICIN [Concomitant]
     Active Substance: EPIRUBICIN
  9. HERCEPTIN [Suspect]
     Active Substance: TRASTUZUMAB
     Dosage: DAY1
     Route: 065
     Dates: start: 20191212

REACTIONS (1)
  - Anastomotic complication [Unknown]
